FAERS Safety Report 25342772 (Version 1)
Quarter: 2025Q2

REPORT INFORMATION
  Report Type: Report from Study
  Country: US (occurrence: US)
  Receive Date: 20250521
  Receipt Date: 20250521
  Transmission Date: 20250716
  Serious: Yes (Other)
  Sender: NOVARTIS
  Company Number: US-002147023-NVSC2025US080978

PATIENT
  Age: 80 Year
  Sex: Male

DRUGS (1)
  1. SCEMBLIX [Suspect]
     Active Substance: ASCIMINIB HYDROCHLORIDE
     Indication: Philadelphia positive chronic myeloid leukaemia
     Dosage: 40 MG, BID
     Route: 048
     Dates: start: 20250425

REACTIONS (4)
  - Retinal dystrophy [Unknown]
  - Macular degeneration [Unknown]
  - Visual impairment [Unknown]
  - Concomitant disease progression [Unknown]

NARRATIVE: CASE EVENT DATE: 20250425
